FAERS Safety Report 19641300 (Version 3)
Quarter: 2023Q1

REPORT INFORMATION
  Report Type: Other
  Country: US (occurrence: None)
  Receive Date: 20210730
  Receipt Date: 20230321
  Transmission Date: 20230417
  Serious: Yes (Other)
  Sender: FDA-Public Use
  Company Number: US-ROCHE-2880898

PATIENT
  Age: 33 Year

DRUGS (1)
  1. OCRELIZUMAB [Suspect]
     Active Substance: OCRELIZUMAB
     Indication: Multiple sclerosis
     Dosage: INITIAL DOSE: 300 MG INTRAVENOUS INFUSION, FOLLOWED TWO WEEKS LATER BY A SECOND 300 MG INTRAVENOUS I
     Route: 042

REACTIONS (4)
  - Nephrolithiasis [Recovered/Resolved]
  - Infection [Unknown]
  - Vomiting [Recovered/Resolved]
  - Urticaria [Recovering/Resolving]

NARRATIVE: CASE EVENT DATE: 20210507
